FAERS Safety Report 8091250-4 (Version None)
Quarter: 2012Q1

REPORT INFORMATION
  Report Type: 
  Country: None (occurrence: None)
  Receive Date: 20120129
  Receipt Date: 20111025
  Transmission Date: 20120608
  Serious: No
  Sender: FDA-Public Use
  Company Number: US-ABBOTT-11P-163-0868208-00

PATIENT
  Age: 66 Year
  Sex: Female

DRUGS (5)
  1. GENERIC OF ZOLOFT [Concomitant]
     Indication: PANIC ATTACK
     Dosage: 2 PILLS A DAY WHEN REMEMBERS TO TAKE IT
  2. ADVAIR DISKUS 100/50 [Concomitant]
     Indication: ASTHMA
     Dosage: 250/500?
  3. UNKNOWN BLOOD PRESSURE MEDICATION STARTS WITH LETTER A [Concomitant]
     Indication: PRODUCT USED FOR UNKNOWN INDICATION
  4. HUMIRA [Suspect]
     Indication: CROHN'S DISEASE
  5. IBUPROFEN [Concomitant]
     Indication: PAIN
     Dates: start: 20010101

REACTIONS (4)
  - INJECTION SITE HAEMORRHAGE [None]
  - PAIN IN EXTREMITY [None]
  - INJECTION SITE NODULE [None]
  - INJECTION SITE ERYTHEMA [None]
